FAERS Safety Report 9482390 (Version 3)
Quarter: 2013Q3

REPORT INFORMATION
  Report Type: Spontaneous
  Country: JP (occurrence: JP)
  Receive Date: 20130828
  Receipt Date: 20130927
  Transmission Date: 20140515
  Serious: No
  Sender: FDA-Public Use
  Company Number: JP-PFIZER INC-2013246096

PATIENT
  Age: 77 Year
  Sex: Male

DRUGS (8)
  1. CHAMPIX [Suspect]
     Indication: SMOKING CESSATION THERAPY
     Dosage: UNK
     Route: 048
  2. LIPIDIL [Concomitant]
     Dosage: 80 MG, DAILY
     Route: 048
  3. EDIROL [Concomitant]
     Indication: OSTEOPOROSIS
     Dosage: 0.75 UG, DAILY
     Route: 048
  4. PARIET [Concomitant]
     Dosage: 10 MG, DAILY
     Route: 048
  5. BIOFERMIN [Concomitant]
     Dosage: UNK
     Route: 048
  6. RECALBON [Concomitant]
     Indication: OSTEOPOROSIS
     Dosage: 50 MG, DAILY
     Route: 048
  7. MYSLEE [Concomitant]
     Indication: INSOMNIA
     Dosage: 10 MG, DAILY
     Route: 048
  8. MOHRUS [Concomitant]
     Dosage: UNK
     Route: 062

REACTIONS (3)
  - Fall [Recovered/Resolved]
  - Dizziness [Recovered/Resolved]
  - Excoriation [Recovered/Resolved]
